FAERS Safety Report 24685257 (Version 1)
Quarter: 2024Q4

REPORT INFORMATION
  Report Type: Spontaneous
  Country: US (occurrence: None)
  Receive Date: 20241127
  Receipt Date: 20241127
  Transmission Date: 20250115
  Serious: Yes (Hospitalization)
  Sender: Public
  Company Number: None

PATIENT
  Age: 90 Year
  Sex: Female
  Weight: 67 kg

DRUGS (6)
  1. LOSARTAN [Suspect]
     Active Substance: LOSARTAN
     Indication: Hypertension
     Dosage: FREQUENCY : DAILY;?
     Route: 048
  2. BUMEX [Suspect]
     Active Substance: BUMETANIDE
  3. DULOXETINE [Suspect]
     Active Substance: DULOXETINE
  4. AMLODIPINE [Suspect]
     Active Substance: AMLODIPINE BESYLATE
  5. METOPROLOL [Suspect]
     Active Substance: METOPROLOL
  6. OXYCODONE [Suspect]
     Active Substance: OXYCODONE

REACTIONS (2)
  - Acute kidney injury [None]
  - Acute kidney injury [None]

NARRATIVE: CASE EVENT DATE: 20240712
